FAERS Safety Report 8253134-8 (Version None)
Quarter: 2012Q2

REPORT INFORMATION
  Report Type: 
  Country: None (occurrence: None)
  Receive Date: 20120402
  Receipt Date: 20120305
  Transmission Date: 20120825
  Serious: No
  Sender: FDA-Public Use
  Company Number: US-AMGEN-USASP2012014342

PATIENT
  Age: 59 Year
  Sex: Male

DRUGS (1)
  1. ENBREL [Suspect]
     Indication: ANKYLOSING SPONDYLITIS
     Dosage: 50 MG, QWK
     Dates: start: 20111202

REACTIONS (8)
  - TREMOR [None]
  - CHILLS [None]
  - FEELING ABNORMAL [None]
  - HYPERSOMNIA [None]
  - PNEUMONIA [None]
  - HOT FLUSH [None]
  - INJECTION SITE PAIN [None]
  - SOMNOLENCE [None]
